FAERS Safety Report 5830688-X (Version None)
Quarter: 2008Q3

REPORT INFORMATION
  Report Type: 
  Country: None (occurrence: None)
  Receive Date: 20080801
  Receipt Date: 20071004
  Transmission Date: 20090109
  Serious: No
  Sender: FDA-Public Use
  Company Number: US-BRISTOL-MYERS SQUIBB COMPANY-13929724

PATIENT
  Age: 84 Year
  Sex: Female
  Weight: 66 kg

DRUGS (9)
  1. COUMADIN [Suspect]
     Indication: CEREBROVASCULAR ACCIDENT
     Dosage: 5MG OD ON WEDNESDAYS AND 4MG OD FOR 6 DAYS A WEEK.
     Route: 048
  2. AMIODARONE [Concomitant]
  3. TENORMIN [Concomitant]
  4. ZESTRIL [Concomitant]
  5. FLAXSEED OIL [Concomitant]
  6. VITAMIN D [Concomitant]
  7. PRESERVISION AREDS [Concomitant]
  8. HUMULIN 70/30 [Concomitant]
  9. COENZYME Q10 [Concomitant]

REACTIONS (1)
  - RETINAL HAEMORRHAGE [None]
